FAERS Safety Report 6656868-1 (Version None)
Quarter: 2010Q1

REPORT INFORMATION
  Report Type: 
  Country: None (occurrence: None)
  Receive Date: 20100329
  Receipt Date: 20100329
  Transmission Date: 20100710
  Serious: Yes (Life-Threatening, Disabling)
  Sender: FDA-Public Use
  Company Number: None

PATIENT
  Age: 51 Year
  Sex: Female
  Weight: 113.3993 kg

DRUGS (1)
  1. VOLTAREN [Suspect]
     Indication: OSTEOARTHRITIS
     Dosage: 75 MG 1-2 TIMES/DAY PO
     Route: 048
     Dates: start: 20040601, end: 20100328

REACTIONS (1)
  - THROMBOPHLEBITIS SUPERFICIAL [None]
